FAERS Safety Report 10064229 (Version 2)
Quarter: 2015Q2

REPORT INFORMATION
  Report Type: Spontaneous
  Country: US (occurrence: US)
  Receive Date: 20140408
  Receipt Date: 20150407
  Transmission Date: 20150821
  Serious: Yes (Death, Life-Threatening, Hospitalization, Other)
  Sender: FDA-Public Use
  Company Number: US-009507513-1404USA003911

PATIENT
  Sex: Female
  Weight: 61.22 kg

DRUGS (1)
  1. JANUVIA [Suspect]
     Active Substance: SITAGLIPTIN PHOSPHATE
     Indication: TYPE 2 DIABETES MELLITUS
     Dosage: 100 MG, QD
     Route: 048
     Dates: start: 20090617, end: 20110816

REACTIONS (18)
  - Goitre [Not Recovered/Not Resolved]
  - Sepsis [Unknown]
  - Dehydration [Unknown]
  - Pancreatitis [Unknown]
  - Cholecystectomy [Unknown]
  - Cholangitis [Unknown]
  - Pancreatic carcinoma [Fatal]
  - Bile duct adenocarcinoma [Fatal]
  - Renal cyst [Unknown]
  - Diabetes mellitus inadequate control [Unknown]
  - Gastric ulcer helicobacter [Unknown]
  - Colitis microscopic [Unknown]
  - Hyponatraemia [Unknown]
  - Acute kidney injury [Unknown]
  - Exophthalmos [Unknown]
  - Tachycardia [Unknown]
  - Device occlusion [Unknown]
  - Calculus ureteric [Unknown]

NARRATIVE: CASE EVENT DATE: 20100617
